FAERS Safety Report 8875303 (Version 1)
Quarter: 2012Q4

REPORT INFORMATION
  Report Type: 
  Country: US (occurrence: US)
  Receive Date: 20121026
  Receipt Date: 20121026
  Transmission Date: 20130627
  Serious: No
  Sender: FDA-Public Use
  Company Number: US-AMGEN-USASP2012044691

PATIENT
  Sex: Female
  Weight: 68.03 kg

DRUGS (6)
  1. ENBREL [Suspect]
     Indication: PRODUCT USED FOR UNKNOWN INDICATION
     Dosage: 50 mg, qwk
     Route: 058
  2. LUTEIN                             /01638501/ [Concomitant]
     Dosage: 20 mg, UNK
  3. UBIQUINOL [Concomitant]
     Dosage: 100 mg, UNK
  4. GLUCOSAMINE [Concomitant]
     Dosage: 1000 mg, UNK
  5. FISH OIL [Concomitant]
     Dosage: UNK
  6. CALCIUM [Concomitant]
     Dosage: 500 mg, UNK

REACTIONS (1)
  - Paraesthesia [Unknown]
